FAERS Safety Report 20543944 (Version 1)
Quarter: 2022Q1

REPORT INFORMATION
  Report Type: Spontaneous
  Country: JP (occurrence: JP)
  Receive Date: 20220303
  Receipt Date: 20220303
  Transmission Date: 20220424
  Serious: Yes (Other)
  Sender: FDA-Public Use
  Company Number: JP-SUNPHARMA-2019R1-228468AA

PATIENT
  Age: 82 Year
  Sex: Male

DRUGS (3)
  1. OCTREOTIDE [Suspect]
     Active Substance: OCTREOTIDE
     Indication: Bundle branch block left
     Dosage: 40 MILLIGRAM, MONTHLY
     Route: 065
  2. OCTREOTIDE [Suspect]
     Active Substance: OCTREOTIDE
     Indication: Ventricular tachycardia
  3. OCTREOTIDE [Suspect]
     Active Substance: OCTREOTIDE
     Indication: Left ventricular hypertrophy

REACTIONS (4)
  - Cholelithiasis [Unknown]
  - Bile duct stone [Unknown]
  - Cholangitis acute [Recovering/Resolving]
  - Adenocarcinoma [Unknown]
